FAERS Safety Report 9718628 (Version 1)
Quarter: 2013Q4

REPORT INFORMATION
  Report Type: Spontaneous
  Country: US (occurrence: US)
  Receive Date: 20131125
  Receipt Date: 20131125
  Transmission Date: 20140711
  Serious: No
  Sender: FDA-Public Use
  Company Number: US-VIVUS-2013V1000002

PATIENT
  Age: 51 Year
  Sex: Female
  Weight: 104.42 kg

DRUGS (6)
  1. QSYMIA 7.5MG/46MG [Suspect]
     Indication: WEIGHT DECREASED
     Route: 048
     Dates: start: 201211, end: 201212
  2. QSYMIA 3.75MG/23MG [Suspect]
     Indication: WEIGHT DECREASED
     Route: 048
     Dates: start: 201210
  3. QSYMIA 15MG/92MG [Suspect]
     Indication: WEIGHT DECREASED
     Route: 048
     Dates: start: 201212
  4. ZOLPIDEM [Concomitant]
     Indication: INSOMNIA
  5. LOSARTAN [Concomitant]
     Indication: BLOOD PRESSURE
  6. HCTZ [Concomitant]
     Indication: BLOOD PRESSURE

REACTIONS (6)
  - Haemorrhoids [Unknown]
  - Constipation [Not Recovered/Not Resolved]
  - Flushing [Recovered/Resolved]
  - Feeling hot [Recovered/Resolved]
  - Dyspnoea [Recovered/Resolved]
  - Paraesthesia [Recovered/Resolved]
